FAERS Safety Report 5466166-X (Version None)
Quarter: 2007Q3

REPORT INFORMATION
  Report Type: 
  Country: None (occurrence: None)
  Receive Date: 20070924
  Receipt Date: 20070912
  Transmission Date: 20080115
  Serious: Yes (Hospitalization, Other)
  Sender: FDA-Public Use
  Company Number: GB-PFIZER INC-2007054133

PATIENT
  Sex: Female
  Weight: 80 kg

DRUGS (8)
  1. EPANUTIN [Interacting]
     Indication: EPILEPSY
     Route: 048
  2. CIPROFLOXACIN [Suspect]
     Indication: INFECTION
     Route: 048
     Dates: start: 20070514, end: 20070518
  3. CIPROFLOXACIN [Suspect]
     Indication: LEUKOPENIA
  4. CARBAMAZEPINE [Suspect]
  5. AMITRIPTYLINE HYDROCHLORIDE [Interacting]
     Indication: NERVE INJURY
  6. CHEMOTHERAPY NOS [Suspect]
     Indication: BREAST CANCER FEMALE
  7. FLUCLOXACILLIN [Suspect]
     Indication: BREAST DISORDER
  8. ALL OTHER THERAPEUTIC PRODUCTS [Concomitant]
     Indication: BREAST CANCER FEMALE

REACTIONS (14)
  - ANTICONVULSANT DRUG LEVEL DECREASED [None]
  - ANTICONVULSANT DRUG LEVEL INCREASED [None]
  - BREAST CANCER FEMALE [None]
  - DIZZINESS [None]
  - DRUG INTERACTION [None]
  - DRUG TOXICITY [None]
  - DYSGEUSIA [None]
  - HALLUCINATION [None]
  - HEAD DISCOMFORT [None]
  - INFECTION [None]
  - LEUKOPENIA [None]
  - MALAISE [None]
  - NERVE INJURY [None]
  - NYSTAGMUS [None]
